FAERS Safety Report 21076608 (Version 1)
Quarter: 2022Q3

REPORT INFORMATION
  Report Type: Spontaneous
  Country: US (occurrence: US)
  Receive Date: 20220713
  Receipt Date: 20220713
  Transmission Date: 20221026
  Serious: No
  Sender: FDA-Public Use
  Company Number: US-ELI_LILLY_AND_COMPANY-US202207004945

PATIENT
  Sex: Male

DRUGS (2)
  1. HUMULIN R U-500 [Suspect]
     Active Substance: INSULIN HUMAN
     Indication: Type 2 diabetes mellitus
     Dosage: 151 U, EACH MORNING
     Route: 058
     Dates: start: 2020
  2. HUMULIN R U-500 [Suspect]
     Active Substance: INSULIN HUMAN
     Dosage: 135 U, EACH EVENING
     Route: 058
     Dates: start: 2020

REACTIONS (3)
  - Glycosylated haemoglobin increased [Unknown]
  - Fall [Recovered/Resolved]
  - Dizziness [Recovered/Resolved]
